FAERS Safety Report 4553160-6 (Version None)
Quarter: 2005Q1

REPORT INFORMATION
  Report Type: 
  Country: None (occurrence: None)
  Receive Date: 20050114
  Receipt Date: 20050107
  Transmission Date: 20050727
  Serious: Yes (Other)
  Sender: FDA-Public Use
  Company Number: JP-GLAXOSMITHKLINE-B0364129A

PATIENT
  Age: 30 Year
  Sex: Female

DRUGS (1)
  1. RELENZA [Suspect]
     Indication: INFLUENZA
     Dosage: 10MG TWICE PER DAY
     Route: 055
     Dates: start: 20050105, end: 20050105

REACTIONS (8)
  - ANAPHYLACTIC SHOCK [None]
  - ARRHYTHMIA [None]
  - CHEST DISCOMFORT [None]
  - CHILLS [None]
  - MUSCLE RIGIDITY [None]
  - PALLOR [None]
  - PHARYNGOLARYNGEAL PAIN [None]
  - PYREXIA [None]
